FAERS Safety Report 7582805-1 (Version None)
Quarter: 2011Q2

REPORT INFORMATION
  Report Type: 
  Country: None (occurrence: None)
  Receive Date: 20110630
  Receipt Date: 20110617
  Transmission Date: 20111010
  Serious: Yes (Hospitalization)
  Sender: FDA-Public Use
  Company Number: US-BAYER-2011-022027

PATIENT
  Age: 44 Year
  Sex: Female
  Weight: 86 kg

DRUGS (16)
  1. HYDROCORTISONE [Concomitant]
     Dosage: 25 MG, UNK
  2. DROSPIRENONE AND ETHINYL ESTRADIOL [Suspect]
     Indication: DYSMENORRHOEA
  3. ANALPRAM-HC [Concomitant]
     Route: 061
  4. YASMIN [Suspect]
     Indication: DYSMENORRHOEA
  5. DROSPIRENONE AND ETHINYL ESTRADIOL [Suspect]
     Indication: OVARIAN CYST
  6. DROSPIRENONE AND ETHINYL ESTRADIOL [Suspect]
     Indication: ACNE
  7. HYOSCYAMINE SULFATE [Concomitant]
  8. YASMIN [Suspect]
     Indication: CONTRACEPTION
     Dosage: UNK
     Dates: start: 20060901, end: 20081101
  9. NASONEX [Concomitant]
     Dosage: 50 ?G, UNK
  10. YASMIN [Suspect]
     Indication: OVARIAN CYST
  11. PROTONIX [Concomitant]
     Dosage: 40 MG, QD
     Route: 048
  12. FEXOFENADINE [Concomitant]
     Dosage: 180 MG, QD
     Route: 048
  13. IBUPROFEN [Concomitant]
  14. YASMIN [Suspect]
     Indication: ACNE
  15. POLYETHYLENE GLYCOL [Concomitant]
     Dosage: UNK
     Route: 048
  16. DROSPIRENONE AND ETHINYL ESTRADIOL [Suspect]
     Indication: CONTRACEPTION
     Dosage: UNK
     Dates: start: 20081121, end: 20090801

REACTIONS (6)
  - ABDOMINAL PAIN UPPER [None]
  - PAIN [None]
  - NAUSEA [None]
  - CHOLECYSTITIS CHRONIC [None]
  - ABDOMINAL DISTENSION [None]
  - ABDOMINAL DISCOMFORT [None]
